FAERS Safety Report 5523255-9 (Version None)
Quarter: 2007Q4

REPORT INFORMATION
  Report Type: 
  Country: None (occurrence: None)
  Receive Date: 20071119
  Receipt Date: 20071119
  Transmission Date: 20080405
  Serious: Yes (Life-Threatening, Other)
  Sender: FDA-Public Use
  Company Number: None

PATIENT
  Age: 21 Year
  Sex: Male
  Weight: 64.4108 kg

DRUGS (4)
  1. CLINDAMYCIN 1% LOTION UNKNOWN [Suspect]
     Indication: FOLLICULITIS
     Dosage: APPLY INCLUDUNG TWICE A DAY TOP
     Route: 061
     Dates: start: 20061110, end: 20070619
  2. CLINDAMYCIN 1% LOTION UNKNOWN [Suspect]
     Indication: FURUNCLE
     Dosage: APPLY INCLUDUNG TWICE A DAY TOP
     Route: 061
     Dates: start: 20061110, end: 20070619
  3. CLINDAMYCIN 1% LOTION UNKNOWN [Suspect]
     Indication: RASH PUSTULAR
     Dosage: APPLY INCLUDUNG TWICE A DAY TOP
     Route: 061
     Dates: start: 20061110, end: 20070619
  4. CLINDAMYCIN 1% LOTION UNKNOWN [Suspect]
     Indication: SCAR
     Dosage: APPLY INCLUDUNG TWICE A DAY TOP
     Route: 061
     Dates: start: 20061110, end: 20070619

REACTIONS (16)
  - ABDOMINAL PAIN [None]
  - ABDOMINAL PAIN UPPER [None]
  - ABNORMAL BEHAVIOUR [None]
  - ANXIETY [None]
  - CONSTIPATION [None]
  - FEAR [None]
  - FLUID INTAKE REDUCED [None]
  - FUNGAL INFECTION [None]
  - FUNGUS STOOL IDENTIFIED [None]
  - GASTRIC DISORDER [None]
  - ORAL INTAKE REDUCED [None]
  - PAIN [None]
  - PHARYNGOLARYNGEAL PAIN [None]
  - SCREAMING [None]
  - ULCER [None]
  - WEIGHT DECREASED [None]
